FAERS Safety Report 8883034 (Version 1)
Quarter: 2012Q4

REPORT INFORMATION
  Report Type: 
  Country: CA (occurrence: CA)
  Receive Date: 20121102
  Receipt Date: 20121102
  Transmission Date: 20130627
  Serious: Yes (Other)
  Sender: FDA-Public Use
  Company Number: CA-TEVA-367605USA

PATIENT
  Sex: Female

DRUGS (1)
  1. COPAXONE [Suspect]
     Indication: RELAPSING-REMITTING MULTIPLE SCLEROSIS
     Dates: start: 199910, end: 200507

REACTIONS (3)
  - Spinal cord disorder [Unknown]
  - Optic neuritis [Unknown]
  - Lipoatrophy [Unknown]
